FAERS Safety Report 12484432 (Version 2)
Quarter: 2016Q3

REPORT INFORMATION
  Report Type: Spontaneous
  Country: CH (occurrence: CH)
  Receive Date: 20160621
  Receipt Date: 20160914
  Transmission Date: 20161109
  Serious: Yes (Hospitalization)
  Sender: FDA-Public Use
  Company Number: CH-PFIZER INC-2016300987

PATIENT
  Age: 23 Year
  Sex: Female

DRUGS (5)
  1. CIPRALEX [Suspect]
     Active Substance: ESCITALOPRAM OXALATE
     Dosage: 20 MG, 1X/DAY (1-0-0-0)
     Route: 048
     Dates: start: 20160302, end: 20160403
  2. TEMESTA [Suspect]
     Active Substance: LORAZEPAM
     Dosage: 1 MG, AS NEEDED (MAX 2/24H)
     Route: 048
  3. HUMULUS LUPULUS EXTRACT/VALERIAN ROOT [Concomitant]
     Active Substance: HOPS\VALERIAN
     Dosage: 1 DF, 1X/DAY
     Route: 048
  4. LEPONEX [Suspect]
     Active Substance: CLOZAPINE
     Dosage: 100 MG, 3X/DAY
     Route: 048
     Dates: end: 20160307
  5. LEPONEX [Suspect]
     Active Substance: CLOZAPINE
     Dosage: 100 MG, 4X/DAY
     Route: 048
     Dates: start: 20160308, end: 20160403

REACTIONS (3)
  - Epilepsy [Recovered/Resolved]
  - Status epilepticus [Recovered/Resolved]
  - Hyponatraemia [Recovered/Resolved]

NARRATIVE: CASE EVENT DATE: 20160403
